FAERS Safety Report 7851867-6 (Version None)
Quarter: 2011Q4

REPORT INFORMATION
  Report Type: 
  Country: None (occurrence: None)
  Receive Date: 20111026
  Receipt Date: 20111021
  Transmission Date: 20120403
  Serious: Yes (Hospitalization)
  Sender: FDA-Public Use
  Company Number: US-ROCHE-1006350

PATIENT
  Age: 59 Year
  Sex: Male
  Weight: 75 kg

DRUGS (7)
  1. TEMOZOLOMIDE [Suspect]
     Indication: GLIOBLASTOMA MULTIFORME
     Route: 048
     Dates: start: 20110110
  2. DEXAMETHASONE [Concomitant]
  3. OXYCODONE HCL [Concomitant]
  4. AVASTIN [Suspect]
     Indication: GLIOBLASTOMA MULTIFORME
     Route: 042
     Dates: start: 20110110
  5. PERCOCET [Concomitant]
  6. LEVETIRACETAM [Concomitant]
  7. PROTONIX [Concomitant]

REACTIONS (3)
  - HAEMATURIA [None]
  - APHASIA [None]
  - CEREBRAL INFARCTION [None]
